FAERS Safety Report 8152636-2 (Version None)
Quarter: 2012Q1

REPORT INFORMATION
  Report Type: 
  Country: None (occurrence: None)
  Receive Date: 20120221
  Receipt Date: 20120213
  Transmission Date: 20120608
  Serious: Yes (Other)
  Sender: FDA-Public Use
  Company Number: US-JNJFOC-20120206932

PATIENT
  Sex: Female
  Weight: 58.97 kg

DRUGS (4)
  1. VITAMIN [Concomitant]
     Route: 048
  2. NUCYNTA [Suspect]
     Dosage: ONCE EVERY 4-6 HOURS
     Route: 048
     Dates: start: 20120207, end: 20120211
  3. CALCIUM [Concomitant]
     Route: 048
  4. NUCYNTA [Suspect]
     Indication: BONE PAIN
     Dosage: 1 EVERY 4-6 HOURS
     Route: 048
     Dates: start: 20120213

REACTIONS (10)
  - VIRAL INFECTION [None]
  - CYSTITIS [None]
  - INFLUENZA LIKE ILLNESS [None]
  - TREMOR [None]
  - PYREXIA [None]
  - LIP SWELLING [None]
  - CHEILITIS [None]
  - MALAISE [None]
  - PAIN [None]
  - PRODUCT QUALITY ISSUE [None]
